FAERS Safety Report 15693233 (Version 2)
Quarter: 2018Q4

REPORT INFORMATION
  Report Type: Spontaneous
  Country: JP (occurrence: JP)
  Receive Date: 20181206
  Receipt Date: 20181226
  Transmission Date: 20190205
  Serious: Yes (Life-Threatening, Other)
  Sender: FDA-Public Use
  Company Number: JP-009507513-1706JPN002624J

PATIENT
  Age: 70 Year
  Sex: Male
  Weight: 64 kg

DRUGS (1)
  1. KEYTRUDA [Suspect]
     Active Substance: PEMBROLIZUMAB
     Indication: LUNG ADENOCARCINOMA
     Dosage: 200 MILLIGRAM, Q3W
     Route: 041
     Dates: start: 20170509, end: 2018

REACTIONS (3)
  - Plasma cell myeloma [Not Recovered/Not Resolved]
  - Rash [Recovered/Resolved]
  - Computerised tomogram thorax abnormal [Unknown]

NARRATIVE: CASE EVENT DATE: 20170514
